FAERS Safety Report 4375014-0 (Version None)
Quarter: 2004Q2

REPORT INFORMATION
  Report Type: 
  Country: None (occurrence: None)
  Receive Date: 20040604
  Receipt Date: 20040521
  Transmission Date: 20050107
  Serious: Yes (Other)
  Sender: FDA-Public Use
  Company Number: 2004-DE-03006GD

PATIENT
  Sex: Male

DRUGS (3)
  1. NEVIRAPINE(NEVIRAPINE) [Suspect]
     Indication: HIV INFECTION
  2. LAMIVUDINE(LAMIVUDINE) [Suspect]
     Indication: HIV INFECTION
  3. STAVUDINE(STAVUDINE) [Suspect]
     Indication: HIV INFECTION

REACTIONS (1)
  - DRUG INEFFECTIVE [None]
